FAERS Safety Report 10976845 (Version 2)
Quarter: 2016Q2

REPORT INFORMATION
  Report Type: Report from Study
  Country: JP (occurrence: JP)
  Receive Date: 20150401
  Receipt Date: 20160506
  Transmission Date: 20160815
  Serious: Yes (Other)
  Sender: FDA-Public Use
  Company Number: JP-009507513-1504JPN000028

PATIENT
  Age: 62 Year
  Sex: Male
  Weight: 70 kg

DRUGS (12)
  1. RIBAVIRIN. [Suspect]
     Active Substance: RIBAVIRIN
     Indication: CHRONIC HEPATITIS C
     Dosage: 800 MG, QD
     Route: 048
     Dates: start: 20141127, end: 20150513
  2. POLAPREZINC [Concomitant]
     Active Substance: POLAPREZINC
     Indication: GASTRIC ULCER
     Dosage: 150 MG, QD
     Route: 048
  3. GASTER [Concomitant]
     Active Substance: FAMOTIDINE
     Indication: GASTRIC ULCER
     Dosage: 20 MG, QD
     Route: 048
  4. TWYNSTA [Concomitant]
     Active Substance: AMLODIPINE BESYLATE\TELMISARTAN
     Dosage: 1 DF, QD
     Route: 048
  5. SIMEPREVIR [Suspect]
     Active Substance: SIMEPREVIR
     Indication: CHRONIC HEPATITIS C
     Dosage: 100 MG, QD
     Route: 048
     Dates: start: 20141127, end: 20150218
  6. HALCION [Concomitant]
     Active Substance: TRIAZOLAM
     Indication: INSOMNIA
     Dosage: 0.25 MG, QD
     Route: 048
  7. CLARITIN [Concomitant]
     Active Substance: LORATADINE
     Indication: ECZEMA
     Dosage: 10 MG, QD
     Route: 048
  8. RINDERON VG [Concomitant]
     Active Substance: BETAMETHASONE VALERATE\GENTAMICIN SULFATE
     Indication: ECZEMA
     Route: 061
  9. PEGINTRON [Suspect]
     Active Substance: PEGINTERFERON ALFA-2B
     Indication: CHRONIC HEPATITIS C
     Dosage: 1.4 MICROGRAM PER KILOGRAM, QW
     Route: 058
     Dates: start: 20141127, end: 20150506
  10. LOXOPROFEN SODIUM [Concomitant]
     Active Substance: LOXOPROFEN SODIUM
     Indication: PROPHYLAXIS
     Dosage: DAILY DOSE:60 MG
     Route: 048
     Dates: start: 20141127
  11. JANUVIA [Concomitant]
     Active Substance: SITAGLIPTIN PHOSPHATE
     Indication: DIABETES MELLITUS
     Dosage: 25 MG, QD
     Route: 048
  12. CELTECT [Concomitant]
     Active Substance: OXATOMIDE
     Indication: ECZEMA
     Dosage: 60 MG, QD
     Route: 048
     Dates: start: 20141204

REACTIONS (4)
  - White blood cell count decreased [Recovered/Resolved]
  - Eosinophil count increased [Recovered/Resolved]
  - Anaemia [Not Recovered/Not Resolved]
  - Hyperbilirubinaemia [Recovered/Resolved]

NARRATIVE: CASE EVENT DATE: 20141211
